FAERS Safety Report 21257488 (Version 3)
Quarter: 2022Q4

REPORT INFORMATION
  Report Type: Spontaneous
  Country: AU (occurrence: AU)
  Receive Date: 20220826
  Receipt Date: 20221007
  Transmission Date: 20230113
  Serious: Yes (Other)
  Sender: FDA-Public Use
  Company Number: AU-NOVARTISPH-NVSC2022AU190299

PATIENT
  Sex: Female

DRUGS (2)
  1. TEGRETOL XR [Suspect]
     Active Substance: CARBAMAZEPINE
     Indication: Epilepsy
     Dosage: 2 DOSAGE FORM, QD (IN THE MORNING)
     Route: 065
  2. TEGRETOL XR [Suspect]
     Active Substance: CARBAMAZEPINE
     Dosage: 2 DOSAGE FORM, QD (IN THE MORNING)
     Route: 065

REACTIONS (6)
  - Feeling abnormal [Unknown]
  - Dissociation [Unknown]
  - Memory impairment [Unknown]
  - Product packaging quantity issue [Unknown]
  - Product physical issue [Unknown]
  - Product packaging issue [Unknown]
